FAERS Safety Report 9255113 (Version 2)
Quarter: 2013Q2

REPORT INFORMATION
  Report Type: Spontaneous
  Country: CA (occurrence: CA)
  Receive Date: 20130425
  Receipt Date: 20130603
  Transmission Date: 20140414
  Serious: Yes (Hospitalization)
  Sender: FDA-Public Use
  Company Number: CA-ELI_LILLY_AND_COMPANY-CA201304005015

PATIENT
  Age: 64 Year
  Sex: Female

DRUGS (22)
  1. FORTEO [Suspect]
     Indication: OSTEOPOROSIS
     Dosage: 20 UG, QD
     Route: 058
     Dates: start: 20111209
  2. MIACALCIN [Concomitant]
     Dosage: UNK, UNKNOWN
     Route: 065
  3. COTAZYM [Concomitant]
     Dosage: UNK, UNKNOWN
     Route: 065
  4. FOLIC ACID [Concomitant]
     Dosage: UNK, UNKNOWN
     Route: 065
  5. SYNTHROID [Concomitant]
     Dosage: UNK, UNKNOWN
     Route: 065
  6. FLOMAX [Concomitant]
     Dosage: UNK, UNKNOWN
     Route: 065
  7. GABAPENTIN [Concomitant]
     Dosage: UNK, UNKNOWN
     Route: 065
  8. CODEINE CONTIN [Concomitant]
     Dosage: UNK, UNKNOWN
     Route: 065
  9. PREVACID [Concomitant]
     Dosage: UNK, UNKNOWN
     Route: 065
  10. ADVAIR [Concomitant]
     Dosage: UNK, UNKNOWN
     Route: 065
  11. SPIRIVA [Concomitant]
     Dosage: UNK, UNKNOWN
     Route: 065
  12. VENTOLIN                                /SCH/ [Concomitant]
     Dosage: UNK, UNKNOWN
     Route: 065
  13. NOVO-QUININE [Concomitant]
     Dosage: UNK, UNKNOWN
     Route: 065
  14. ASA [Concomitant]
     Dosage: UNK, UNKNOWN
     Route: 065
  15. BISOPROLOL [Concomitant]
     Dosage: UNK, UNKNOWN
     Route: 065
  16. BEFORTE [Concomitant]
     Dosage: UNK, UNKNOWN
     Route: 065
  17. MAGNESIUM [Concomitant]
     Dosage: UNK, UNKNOWN
     Route: 065
  18. QUETIAPINE [Concomitant]
     Dosage: UNK, UNKNOWN
     Route: 065
  19. LIPTOR [Concomitant]
     Dosage: UNK, UNKNOWN
     Route: 065
  20. LASIX [Concomitant]
     Dosage: UNK, UNKNOWN
     Route: 065
  21. CYCLOBENZAPRINE [Concomitant]
     Dosage: UNK, UNKNOWN
     Route: 065
  22. ZYLOPRIM [Concomitant]
     Dosage: UNK, UNKNOWN
     Route: 065

REACTIONS (4)
  - Dehydration [Unknown]
  - Electrolyte imbalance [Recovered/Resolved]
  - Diarrhoea [Recovered/Resolved]
  - Muscle spasms [Recovered/Resolved]
